FAERS Safety Report 8103140-9 (Version None)
Quarter: 2012Q1

REPORT INFORMATION
  Report Type: 
  Country: None (occurrence: None)
  Receive Date: 20120201
  Receipt Date: 20120124
  Transmission Date: 20120608
  Serious: Yes (Hospitalization, Other)
  Sender: FDA-Public Use
  Company Number: US-ACTELION-A-US2009-26543

PATIENT

DRUGS (1)
  1. TRACLEER [Suspect]
     Indication: PULMONARY ARTERIAL HYPERTENSION
     Dosage: UNK
     Route: 048
     Dates: start: 20090123

REACTIONS (11)
  - CHEST PAIN [None]
  - LOSS OF CONSCIOUSNESS [None]
  - DIZZINESS [None]
  - NASAL CONGESTION [None]
  - FUNGAL INFECTION [None]
  - COUGH [None]
  - PNEUMONIA [None]
  - DYSPNOEA [None]
  - SYNCOPE [None]
  - FALL [None]
  - HEADACHE [None]
